FAERS Safety Report 10251216 (Version 1)
Quarter: 2014Q2

REPORT INFORMATION
  Report Type: Report from Study
  Country: US (occurrence: US)
  Receive Date: 20140620
  Receipt Date: 20140620
  Transmission Date: 20141212
  Serious: Yes (Hospitalization, Other)
  Sender: FDA-Public Use
  Company Number: US-ABBVIE-14P-163-1247641-00

PATIENT
  Sex: Female

DRUGS (13)
  1. HUMIRA [Suspect]
     Indication: ANKYLOSING SPONDYLITIS
     Dates: start: 2007
  2. HUMIRA [Suspect]
  3. HUMIRA [Suspect]
  4. PROZAC [Concomitant]
     Indication: DEPRESSION
  5. LOSARTAN WITH HCTZ [Concomitant]
     Indication: PRODUCT USED FOR UNKNOWN INDICATION
     Dosage: 100/125MG
  6. PRAVASTATIN [Concomitant]
     Indication: BLOOD CHOLESTEROL INCREASED
     Dosage: AT NIGHT
  7. MORPHINE [Concomitant]
     Indication: PAIN
  8. MORPHINE [Concomitant]
  9. OXYCODONE [Concomitant]
     Indication: BREAKTHROUGH PAIN
     Dosage: 30MG EVERY FOUR TO SIX HOURS
  10. PROTONIX [Concomitant]
     Indication: GASTROOESOPHAGEAL REFLUX DISEASE
  11. CLONAZEPAM [Concomitant]
     Indication: INSOMNIA
     Dosage: 1-3 TABS PRN
  12. CLONAZEPAM [Concomitant]
     Indication: STRESS
  13. ENABLEX [Concomitant]
     Indication: URINARY INCONTINENCE
     Dosage: 7.5MG DAILY HALF TABLET

REACTIONS (35)
  - Pulmonary embolism [Not Recovered/Not Resolved]
  - Herpes zoster [Unknown]
  - Weight increased [Unknown]
  - Staphylococcal infection [Unknown]
  - Knee operation [Unknown]
  - Benign neoplasm of skin [Unknown]
  - Limb operation [Unknown]
  - Laceration [Unknown]
  - Fall [Unknown]
  - Wound [Unknown]
  - Drug ineffective [Unknown]
  - Tendon disorder [Unknown]
  - Nail growth abnormal [Unknown]
  - Alopecia [Unknown]
  - Head discomfort [Unknown]
  - Rash generalised [Unknown]
  - Rash papular [Unknown]
  - Headache [Unknown]
  - Oedema peripheral [Unknown]
  - Butterfly rash [Unknown]
  - Tinnitus [Unknown]
  - Hypoaesthesia [Unknown]
  - Paraesthesia [Unknown]
  - Intervertebral disc protrusion [Unknown]
  - Chest pain [Unknown]
  - Musculoskeletal pain [Unknown]
  - Muscle strain [Unknown]
  - Hepatic enzyme increased [Unknown]
  - Blood iron decreased [Unknown]
  - Cholelithiasis [Unknown]
  - Red blood cell analysis abnormal [Unknown]
  - Dizziness [Unknown]
  - Malaise [Unknown]
  - Oedema peripheral [Unknown]
  - Nerve compression [Unknown]
